FAERS Safety Report 6328286-7 (Version None)
Quarter: 2009Q3

REPORT INFORMATION
  Report Type: 
  Country: None (occurrence: None)
  Receive Date: 20090825
  Receipt Date: 20090605
  Transmission Date: 20100115
  Serious: No
  Sender: FDA-Public Use
  Company Number: US-ABBOTT-09P-163-0579018-00

PATIENT
  Age: 31 Year
  Sex: Male
  Weight: 15.9 kg

DRUGS (11)
  1. SYNTHROID [Suspect]
     Indication: THYROIDECTOMY
     Route: 048
     Dates: start: 20080301
  2. SYNTHROID [Suspect]
     Route: 048
     Dates: start: 20090520
  3. SYNTHROID [Suspect]
     Route: 048
  4. SYNTHROID [Suspect]
     Route: 048
     Dates: end: 20090520
  5. SYNTHROID [Suspect]
     Route: 048
  6. SYNTHROID [Suspect]
     Route: 048
  7. METHADONE [Concomitant]
     Indication: BACK PAIN
  8. TESTOSTERONE PATCH [Concomitant]
     Indication: DRUG USE FOR UNKNOWN INDICATION
     Dates: start: 20080101
  9. FOLIC ACID [Concomitant]
     Indication: DRUG USE FOR UNKNOWN INDICATION
  10. LYRICA [Concomitant]
     Indication: DRUG USE FOR UNKNOWN INDICATION
  11. ZOLOFT [Concomitant]
     Indication: DRUG USE FOR UNKNOWN INDICATION

REACTIONS (2)
  - BLOOD TESTOSTERONE DECREASED [None]
  - BLOOD THYROID STIMULATING HORMONE INCREASED [None]
